FAERS Safety Report 12019699 (Version 1)
Quarter: 2016Q1

REPORT INFORMATION
  Report Type: Report from Study
  Country: US (occurrence: US)
  Receive Date: 20160206
  Receipt Date: 20160206
  Transmission Date: 20160526
  Serious: No
  Sender: FDA-Public Use
  Company Number: US-ABBVIE-15K-163-1461481-00

PATIENT
  Age: 37 Year
  Sex: Male

DRUGS (1)
  1. HUMIRA [Suspect]
     Active Substance: ADALIMUMAB
     Indication: RHEUMATOID ARTHRITIS
     Route: 065
     Dates: start: 20150830

REACTIONS (3)
  - Penile oedema [Recovered/Resolved]
  - Penile erythema [Recovering/Resolving]
  - Acne pustular [Recovering/Resolving]

NARRATIVE: CASE EVENT DATE: 20150831
